FAERS Safety Report 11499773 (Version 1)
Quarter: 2015Q3

REPORT INFORMATION
  Report Type: Spontaneous
  Country: None (occurrence: None)
  Receive Date: 20150911
  Receipt Date: 20150911
  Transmission Date: 20151125
  Serious: Yes (Other)
  Sender: FDA-Public Use
  Company Number: None

PATIENT
  Age: 74 Year
  Sex: Female
  Weight: 90.72 kg

DRUGS (1)
  1. DILTIAZEM 120MG TEVA [Suspect]
     Active Substance: DILTIAZEM
     Indication: HYPERTENSION
     Dosage: ER 120MG QD ORAL
     Route: 048
     Dates: start: 20141203, end: 20141207

REACTIONS (1)
  - Erythema multiforme [None]

NARRATIVE: CASE EVENT DATE: 20141203
